FAERS Safety Report 8113700-7 (Version None)
Quarter: 2012Q1

REPORT INFORMATION
  Report Type: 
  Country: None (occurrence: None)
  Receive Date: 20120203
  Receipt Date: 20120127
  Transmission Date: 20120608
  Serious: Yes (Hospitalization)
  Sender: FDA-Public Use
  Company Number: US-CELGENEUS-163-21880-11121540

PATIENT
  Sex: Male
  Weight: 66.45 kg

DRUGS (1)
  1. REVLIMID [Suspect]
     Dosage: 15 MILLIGRAM
     Route: 048
     Dates: start: 20111024

REACTIONS (5)
  - ORAL HERPES [None]
  - INFECTION [None]
  - WHITE BLOOD CELL COUNT DECREASED [None]
  - DRY SKIN [None]
  - CHOLESTASIS [None]
